FAERS Safety Report 4974028-7 (Version None)
Quarter: 2006Q2

REPORT INFORMATION
  Report Type: 
  Country: None (occurrence: None)
  Receive Date: 20060410
  Receipt Date: 20051018
  Transmission Date: 20061013
  Serious: Yes (Hospitalization, Other)
  Sender: FDA-Public Use
  Company Number: 2006015202

PATIENT
  Age: 68 Year
  Sex: Female

DRUGS (7)
  1. BEXTRA [Suspect]
     Indication: ARTHRALGIA
     Dosage: (20 MG)
     Dates: start: 20040101, end: 20040101
  2. ROBITUSSIN ^ROBINS^ (GUAIFENESIN) [Concomitant]
  3. GLUCOPHAGE [Concomitant]
  4. TYLENOL [Concomitant]
  5. LOPRESSOR [Concomitant]
  6. VIOXX [Concomitant]
  7. CELEBREX [Concomitant]

REACTIONS (9)
  - ANGIONEUROTIC OEDEMA [None]
  - BURNING SENSATION [None]
  - CELLULITIS [None]
  - DRUG ERUPTION [None]
  - FURUNCLE [None]
  - OEDEMA PERIPHERAL [None]
  - PAIN [None]
  - SCRATCH [None]
  - STEVENS-JOHNSON SYNDROME [None]
